FAERS Safety Report 7371318-8 (Version None)
Quarter: 2011Q1

REPORT INFORMATION
  Report Type: 
  Country: None (occurrence: None)
  Receive Date: 20110324
  Receipt Date: 20110321
  Transmission Date: 20110831
  Serious: Yes (Life-Threatening, Hospitalization)
  Sender: FDA-Public Use
  Company Number: US-B.I. PHARMACEUTICALS,INC./RIDGEFIELD-2011-BP-02792BP

PATIENT
  Sex: Male
  Weight: 85 kg

DRUGS (8)
  1. PRADAXA [Suspect]
     Indication: ATRIAL FIBRILLATION
     Dosage: 150 MG
     Route: 048
     Dates: start: 20101201, end: 20110210
  2. LISINOPRIL [Concomitant]
     Dosage: 10 MG
  3. PRAVASTATIN [Concomitant]
     Dosage: 40 MG
  4. METOPROLOL [Concomitant]
     Dosage: 25 MG
  5. ASPIRIN [Concomitant]
     Dosage: 81 MG
  6. AMIODARONE HCL [Concomitant]
     Dosage: 200 MG
  7. POTASSIUM CHLORIDE [Concomitant]
     Dosage: 10 MEQ
  8. LASIX [Concomitant]
     Dosage: 20 MG

REACTIONS (9)
  - DYSPNOEA [None]
  - HAEMOTHORAX [None]
  - HEPATIC ENZYME INCREASED [None]
  - HAEMORRHAGE [None]
  - RENAL FAILURE ACUTE [None]
  - HEPATIC FAILURE [None]
  - URINE OUTPUT DECREASED [None]
  - INTERNATIONAL NORMALISED RATIO INCREASED [None]
  - PLEURAL EFFUSION [None]
